FAERS Safety Report 6808422-6 (Version None)
Quarter: 2010Q2

REPORT INFORMATION
  Report Type: 
  Country: None (occurrence: None)
  Receive Date: 20100629
  Receipt Date: 20090630
  Transmission Date: 20101027
  Serious: No
  Sender: FDA-Public Use
  Company Number: US-PFIZER INC-2009211419

PATIENT
  Sex: Female
  Weight: 73 kg

DRUGS (14)
  1. TIKOSYN [Suspect]
     Indication: ATRIAL FIBRILLATION
     Dosage: 0.25 MG, 2X/DAY
     Dates: start: 20080801
  2. MINOXIDIL [Concomitant]
     Dosage: 10 MG, DAILY
  3. AGGRENOX [Concomitant]
     Dosage: 25/200 MG
  4. SYNTHROID [Concomitant]
     Dosage: 112 MCG DAILY
  5. LEXAPRO [Concomitant]
     Dosage: 10 MG, DAILY
  6. ALLEGRA [Concomitant]
     Dosage: 180 DAILY
  7. LASIX [Concomitant]
     Dosage: 40 MG, DAILY
  8. WARFARIN [Concomitant]
     Dosage: 2.5 MG, DAILY
  9. VALSARTAN [Concomitant]
     Dosage: 160 MG, DAILY
  10. TRICOR [Concomitant]
     Dosage: 145 MG, DAILY
  11. IBANDRONATE SODIUM [Concomitant]
     Dosage: 150 MG, MONTHLY
  12. XANAX [Concomitant]
     Dosage: 0.5 MG, AS NEEDED
  13. CALTRATE + D [Concomitant]
     Dosage: DAILY
  14. MULTI-VITAMINS [Concomitant]
     Dosage: UNK

REACTIONS (1)
  - CYSTITIS [None]
